FAERS Safety Report 24735525 (Version 1)
Quarter: 2024Q4

REPORT INFORMATION
  Report Type: Spontaneous
  Country: CN (occurrence: CN)
  Receive Date: 20241216
  Receipt Date: 20241216
  Transmission Date: 20250115
  Serious: Yes (Hospitalization)
  Sender: ROCHE
  Company Number: CN-ROCHE-10000157246

PATIENT
  Age: 51 Year
  Sex: Female
  Weight: 51.5 kg

DRUGS (3)
  1. BEVACIZUMAB [Suspect]
     Active Substance: BEVACIZUMAB
     Indication: Symptomatic treatment
     Route: 042
     Dates: start: 20241115, end: 20241115
  2. CARBOPLATIN [Suspect]
     Active Substance: CARBOPLATIN
     Indication: Symptomatic treatment
     Route: 042
     Dates: start: 20241115, end: 20241115
  3. PACLITAXEL [Suspect]
     Active Substance: PACLITAXEL
     Indication: Symptomatic treatment
     Route: 042
     Dates: start: 20241115, end: 20241115

REACTIONS (1)
  - Myelosuppression [Recovering/Resolving]

NARRATIVE: CASE EVENT DATE: 20241122
